FAERS Safety Report 17536918 (Version 3)
Quarter: 2020Q2

REPORT INFORMATION
  Report Type: Spontaneous
  Country: DE (occurrence: DE)
  Receive Date: 20200313
  Receipt Date: 20200522
  Transmission Date: 20200713
  Serious: Yes (Other)
  Sender: FDA-Public Use
  Company Number: NVSC2020DE070849

PATIENT
  Age: 70 Year
  Sex: Male

DRUGS (16)
  1. CYTARABINE. [Concomitant]
     Active Substance: CYTARABINE
     Indication: CHEMOTHERAPY
     Dosage: 2000 MG/M2
     Route: 065
  2. OXALIPLATIN. [Concomitant]
     Active Substance: OXALIPLATIN
     Indication: CHEMOTHERAPY
     Dosage: 1000 MG/M2
     Route: 065
  3. CARMUSTINE. [Concomitant]
     Active Substance: CARMUSTINE
     Indication: CHEMOTHERAPY
     Dosage: 60 MG/M2
     Route: 065
  4. MELPHALAN. [Concomitant]
     Active Substance: MELPHALAN
     Indication: CHEMOTHERAPY
     Dosage: 20 MG/M2
     Route: 065
  5. DOXORUBICIN [Suspect]
     Active Substance: DOXORUBICIN
     Indication: DIFFUSE LARGE B-CELL LYMPHOMA
     Dosage: 20 MG/M2, CYCLIC (6 CYCLES)
     Route: 065
  6. DEXAMETHASONE. [Concomitant]
     Active Substance: DEXAMETHASONE
     Indication: CHEMOTHERAPY
     Dosage: 16 MG
     Route: 065
  7. BENDAMUSTINE [Concomitant]
     Active Substance: BENDAMUSTINE
     Indication: CHEMOTHERAPY
     Dosage: 90 MG/M2
     Route: 065
  8. ENDOXAN [Suspect]
     Active Substance: CYCLOPHOSPHAMIDE
     Indication: DIFFUSE LARGE B-CELL LYMPHOMA
     Dosage: 750 MG/M2, CYCLIC (6 CYCLES)
     Route: 065
  9. RITUXIMAB. [Suspect]
     Active Substance: RITUXIMAB
     Indication: DIFFUSE LARGE B-CELL LYMPHOMA
     Dosage: 375 MG/M2, CYCLIC (6 CYCLES)
     Route: 065
  10. CISPLATIN. [Concomitant]
     Active Substance: CISPLATIN
     Indication: CHEMOTHERAPY
     Dosage: 100 MG/M2
     Route: 065
  11. PREDNISOLONE. [Suspect]
     Active Substance: PREDNISOLONE
     Indication: DIFFUSE LARGE B-CELL LYMPHOMA
     Dosage: 100 MG/M2, CYCLIC (6 CYCLES)
     Route: 042
  12. VINCRISTINE [Suspect]
     Active Substance: VINCRISTINE
     Indication: DIFFUSE LARGE B-CELL LYMPHOMA
     Dosage: 1.4 MG/M2, CYCLIC (6 CYCLES)
     Route: 065
  13. ETOPOSIDE. [Concomitant]
     Active Substance: ETOPOSIDE
     Indication: CHEMOTHERAPY
     Dosage: 250 MG/M2, QD
     Route: 065
  14. CYTARABINE. [Concomitant]
     Active Substance: CYTARABINE
     Dosage: 100 MG/M2, BID
     Route: 065
  15. DEXAMETHASONE. [Concomitant]
     Active Substance: DEXAMETHASONE
     Dosage: 24 MG
     Route: 065
  16. GEMCITABINE HYDROCHLORIDE. [Concomitant]
     Active Substance: GEMCITABINE HYDROCHLORIDE
     Indication: CHEMOTHERAPY
     Dosage: 1000 MG/M2
     Route: 065

REACTIONS (1)
  - Thrombocytopenia [Recovered/Resolved]
